FAERS Safety Report 5478995-7 (Version None)
Quarter: 2007Q4

REPORT INFORMATION
  Report Type: 
  Country: None (occurrence: None)
  Receive Date: 20071006
  Receipt Date: 20070925
  Transmission Date: 20080405
  Serious: No
  Sender: FDA-Public Use
  Company Number: AR-PFIZER INC-2007078038

PATIENT
  Age: 84 Year
  Sex: Male

DRUGS (2)
  1. ZITHROMAX [Suspect]
     Indication: BRONCHITIS
     Route: 048
  2. QUINOLONE ANTIBACTERIALS [Suspect]

REACTIONS (1)
  - NO ADVERSE REACTION [None]
